FAERS Safety Report 8002672-1 (Version None)
Quarter: 2011Q4

REPORT INFORMATION
  Report Type: 
  Country: None (occurrence: None)
  Receive Date: 20111222
  Receipt Date: 20111219
  Transmission Date: 20120403
  Serious: Yes (Hospitalization)
  Sender: FDA-Public Use
  Company Number: SG-SANOFI-AVENTIS-2011SA082639

PATIENT
  Sex: Female

DRUGS (2)
  1. TS 1 [Suspect]
     Indication: GASTRIC CANCER
     Route: 065
     Dates: start: 20111031, end: 20111114
  2. OXALIPLATIN [Suspect]
     Indication: GASTRIC CANCER
     Route: 065
     Dates: start: 20111031, end: 20111031

REACTIONS (2)
  - DEVICE OCCLUSION [None]
  - FEEDING TUBE COMPLICATION [None]
